FAERS Safety Report 4455496-6 (Version None)
Quarter: 2004Q3

REPORT INFORMATION
  Report Type: 
  Country: None (occurrence: None)
  Receive Date: 20040917
  Receipt Date: 20040907
  Transmission Date: 20050211
  Serious: No
  Sender: FDA-Public Use
  Company Number: 04H-167-0272567-00

PATIENT
  Sex: Female

DRUGS (4)
  1. ETOMIDATE [Suspect]
     Indication: INDUCTION OF ANAESTHESIA
     Dosage: 0.3 MG/KG, ONCE, INTRAVENOUS/1 HOUR AFTER PREMEDICATION
  2. TAMAZEPAM [Concomitant]
  3. OXYGEN [Concomitant]
  4. ENFLURANE [Concomitant]

REACTIONS (2)
  - ANAESTHETIC COMPLICATION [None]
  - APNOEA [None]
